FAERS Safety Report 5074288-0 (Version None)
Quarter: 2006Q3

REPORT INFORMATION
  Report Type: 
  Country: None (occurrence: None)
  Receive Date: 20060808
  Receipt Date: 20060227
  Transmission Date: 20061208
  Serious: No
  Sender: FDA-Public Use
  Company Number: US-AMGEN-US170479

PATIENT
  Sex: Female
  Weight: 3.1 kg

DRUGS (1)
  1. EPOGEN [Suspect]
     Indication: PREMATURE BABY
     Dates: start: 20060201

REACTIONS (1)
  - ACCIDENTAL OVERDOSE [None]
